FAERS Safety Report 9726046 (Version 2)
Quarter: 2014Q1

REPORT INFORMATION
  Report Type: Spontaneous
  Country: PL (occurrence: PL)
  Receive Date: 20131203
  Receipt Date: 20140109
  Transmission Date: 20141002
  Serious: Yes (Hospitalization, Other)
  Sender: FDA-Public Use
  Company Number: PL-PFIZER INC-2013337198

PATIENT
  Age: 82 Year
  Sex: Male

DRUGS (8)
  1. ZETAMAX [Suspect]
     Indication: RESPIRATORY TRACT INFECTION
     Dosage: 2 G, 1X/DAY
     Route: 048
     Dates: start: 20131024, end: 20131024
  2. POLOCARD [Concomitant]
     Dosage: 75 UNK, 1X/DAY
  3. POLFENON [Concomitant]
     Dosage: 150 MG, 3X/DAY
  4. ATORVASTATIN [Concomitant]
     Dosage: 20 UNK, 1X/DAY
  5. INSPRA [Concomitant]
     Dosage: 25 UNK, 1X/DAY
  6. OMNIC OCAS [Concomitant]
     Dosage: UNK
  7. PREDUCTAL MR [Concomitant]
     Dosage: UNK
  8. KALIPOZ [Concomitant]
     Dosage: UNK

REACTIONS (6)
  - Neurosensory hypoacusis [Not Recovered/Not Resolved]
  - Deafness [Not Recovered/Not Resolved]
  - Tinnitus [Not Recovered/Not Resolved]
  - Chills [Unknown]
  - Feeling hot [Unknown]
  - Visual field defect [Unknown]
